FAERS Safety Report 5900642-8 (Version None)
Quarter: 2008Q3

REPORT INFORMATION
  Report Type: 
  Country: None (occurrence: None)
  Receive Date: 20080926
  Receipt Date: 20080915
  Transmission Date: 20090109
  Serious: Yes (Other)
  Sender: FDA-Public Use
  Company Number: BR-PFIZER INC-2008078653

PATIENT
  Sex: Male
  Weight: 92 kg

DRUGS (2)
  1. VIAGRA [Suspect]
     Indication: ERECTILE DYSFUNCTION
     Route: 048
     Dates: start: 20080101
  2. INSULIN [Concomitant]

REACTIONS (2)
  - EYE INFLAMMATION [None]
  - VISION BLURRED [None]
